FAERS Safety Report 4664452-4 (Version None)
Quarter: 2005Q2

REPORT INFORMATION
  Report Type: 
  Country: None (occurrence: None)
  Receive Date: 20050518
  Receipt Date: 20050506
  Transmission Date: 20051028
  Serious: Yes (Congenital Anomaly, Other)
  Sender: FDA-Public Use
  Company Number: JP-JNJFOC-20050502966

PATIENT

DRUGS (2)
  1. RISPERDAL [Suspect]
  2. RISPERDAL [Suspect]

REACTIONS (2)
  - PATENT DUCTUS ARTERIOSUS [None]
  - PNEUMOTHORAX [None]
